FAERS Safety Report 8234822-6 (Version None)
Quarter: 2012Q1

REPORT INFORMATION
  Report Type: 
  Country: None (occurrence: None)
  Receive Date: 20120321
  Receipt Date: 20111213
  Transmission Date: 20120608
  Serious: Yes (Hospitalization, Other)
  Sender: FDA-Public Use
  Company Number: DSA_55688_2012

PATIENT
  Age: 57 Year
  Sex: Male

DRUGS (13)
  1. POTASSIUM CHLORIDE [Concomitant]
  2. SMECTITE [Concomitant]
  3. IMIPENEM/CILASTATIN [Concomitant]
  4. OXAZEPAM [Concomitant]
  5. XANAX [Concomitant]
  6. RED BLOOD CELLS [Concomitant]
  7. FLAGYL [Suspect]
     Indication: PSEUDOMEMBRANOUS COLITIS
     Dosage: (500 MG TID ORAL), (500 MG TID ORAL)
     Route: 048
     Dates: start: 20111006, end: 20111118
  8. FLAGYL [Suspect]
     Indication: PSEUDOMEMBRANOUS COLITIS
     Dosage: (500 MG TID ORAL), (500 MG TID ORAL)
     Route: 048
     Dates: start: 20110922, end: 20110930
  9. VANCOMYCIN [Concomitant]
  10. AZACITIDINE [Concomitant]
  11. OTHER HORMONES [Concomitant]
  12. ULTRA-LEVURE [Concomitant]
  13. PLATELETS [Concomitant]

REACTIONS (10)
  - PROTHROMBIN TIME RATIO DECREASED [None]
  - TACHYCARDIA [None]
  - CHOLESTASIS [None]
  - HEPATOMEGALY [None]
  - BLOOD ALKALINE PHOSPHATASE INCREASED [None]
  - GAMMA-GLUTAMYLTRANSFERASE INCREASED [None]
  - THROMBOCYTOPENIA [None]
  - HYPERBILIRUBINAEMIA [None]
  - ANAEMIA [None]
  - HYPOTENSION [None]
